FAERS Safety Report 8543695-3 (Version None)
Quarter: 2012Q3

REPORT INFORMATION
  Report Type: 
  Country: None (occurrence: None)
  Receive Date: 20120727
  Receipt Date: 20120402
  Transmission Date: 20120928
  Serious: Yes (Hospitalization)
  Sender: FDA-Public Use
  Company Number: CH-SANOFI-AVENTIS-2012SA022573

PATIENT
  Age: 65 Year
  Sex: Female

DRUGS (12)
  1. SEROQUEL [Concomitant]
  2. MULTAQ [Suspect]
     Indication: ATRIAL FIBRILLATION
     Route: 048
     Dates: start: 20120126, end: 20120204
  3. MOXONIDINE [Concomitant]
     Indication: HYPERTENSION
  4. PREDNISOLONE [Concomitant]
  5. PRAVASTATIN [Concomitant]
  6. PULMICORT [Concomitant]
     Dosage: DOSE: 400 TH DOSE:400 UNIT(S)
  7. ACETAMINOPHEN [Concomitant]
  8. METOPROLOL TARTRATE [Concomitant]
  9. NORVASC [Concomitant]
  10. ESOMEPRAZOLE [Concomitant]
  11. MARCUMAR [Concomitant]
     Dosage: FREQUENCY: ACCORDING TO INR
  12. CITALOPRAM HYDROBROMIDE [Concomitant]

REACTIONS (6)
  - WEIGHT INCREASED [None]
  - GLOMERULONEPHRITIS [None]
  - NEPHROTIC SYNDROME [None]
  - HAEMODIALYSIS [None]
  - RENAL FAILURE [None]
  - GENERALISED OEDEMA [None]
